FAERS Safety Report 23974344 (Version 1)
Quarter: 2024Q2

REPORT INFORMATION
  Report Type: Spontaneous
  Country: US (occurrence: US)
  Receive Date: 20240614
  Receipt Date: 20240614
  Transmission Date: 20240716
  Serious: No
  Sender: FDA-Public Use
  Company Number: US-SUN PHARMACEUTICAL INDUSTRIES LTD-2023R1-420223

PATIENT
  Sex: Female

DRUGS (1)
  1. LIOTHYRONINE [Suspect]
     Active Substance: LIOTHYRONINE
     Indication: Hypothyroidism
     Dosage: ONE AND A HALF TABLETS AT A DOSE OF 5 MCG
     Route: 065

REACTIONS (3)
  - Heart rate increased [Unknown]
  - Palpitations [Unknown]
  - Recalled product administered [Unknown]
